FAERS Safety Report 6332222-7 (Version None)
Quarter: 2009Q3

REPORT INFORMATION
  Report Type: 
  Country: None (occurrence: None)
  Receive Date: 20090828
  Receipt Date: 20090813
  Transmission Date: 20100115
  Serious: Yes (Disabling)
  Sender: FDA-Public Use
  Company Number: US-BAYER-200929890NA

PATIENT
  Sex: Female

DRUGS (2)
  1. CIPRO [Suspect]
     Indication: URINARY TRACT INFECTION
     Dates: start: 20080101
  2. CIPRO [Suspect]
     Dates: start: 20080101

REACTIONS (4)
  - MOBILITY DECREASED [None]
  - TENDINOUS CONTRACTURE [None]
  - TENDON PAIN [None]
  - URINARY TRACT INFECTION [None]
